FAERS Safety Report 19255899 (Version 3)
Quarter: 2021Q2

REPORT INFORMATION
  Report Type: Other
  Country: US (occurrence: US)
  Receive Date: 20210514
  Receipt Date: 20210615
  Transmission Date: 20210717
  Serious: Yes (Hospitalization, Other)
  Sender: FDA-Public Use
  Company Number: US-INTERCEPT-PM2021001515

PATIENT
  Age: 65 Year
  Sex: Female
  Weight: 68.48 kg

DRUGS (11)
  1. OCALIVA [Suspect]
     Active Substance: OBETICHOLIC ACID
     Indication: PRIMARY BILIARY CHOLANGITIS
     Dosage: 5 MILLIGRAM, QD
     Route: 048
     Dates: start: 20210505, end: 20210507
  2. OCUVITE ADULT 50+ [ASCORBIC ACID;COPPER GLUCONATE;FISH OIL;TOCOPHEROL; [Concomitant]
  3. VALACYCLOVIR [Concomitant]
     Active Substance: VALACYCLOVIR HYDROCHLORIDE
  4. ASPIRIN [ACETYLSALICYLIC ACID] [Concomitant]
     Active Substance: ASPIRIN
  5. CRANBERRY [VACCINIUM SPP.] [Concomitant]
     Active Substance: CRANBERRY
  6. PREMARIN [Concomitant]
     Active Substance: ESTROGENS, CONJUGATED
  7. VITAMIN D3 [Concomitant]
     Active Substance: CHOLECALCIFEROL
  8. IMURAN [Concomitant]
     Active Substance: AZATHIOPRINE
  9. VITAMINS NOS [Concomitant]
     Active Substance: VITAMINS
  10. SUPER B COMPLEX [AMINOBENZOIC ACID;BIOTIN;CALCIUM PANTOTHENATE;CHOLINE [Concomitant]
  11. FISH OIL [Concomitant]
     Active Substance: FISH OIL

REACTIONS (10)
  - Hypersensitivity [Unknown]
  - Vomiting [Unknown]
  - Dehydration [Unknown]
  - Nausea [Unknown]
  - Product dose omission issue [Unknown]
  - Emergency care [Unknown]
  - Sleep disorder [Unknown]
  - Loss of consciousness [Recovered/Resolved]
  - Headache [Unknown]
  - Diarrhoea [Unknown]

NARRATIVE: CASE EVENT DATE: 202105
